FAERS Safety Report 13779705 (Version 1)
Quarter: 2017Q3

REPORT INFORMATION
  Report Type: Spontaneous
  Country: US (occurrence: US)
  Receive Date: 20170722
  Receipt Date: 20170722
  Transmission Date: 20171127
  Serious: Yes (Hospitalization)
  Sender: FDA-Public Use
  Company Number: US-009507513-1707USA008639

PATIENT
  Age: 67 Year

DRUGS (6)
  1. CYTOXAN [Suspect]
     Active Substance: CYCLOPHOSPHAMIDE
     Indication: CHEMOTHERAPY
  2. CYTOXAN [Suspect]
     Active Substance: CYCLOPHOSPHAMIDE
     Indication: PLASMA CELL MYELOMA
     Dosage: UNK
  3. DECADRON [Suspect]
     Active Substance: DEXAMETHASONE
     Indication: CHEMOTHERAPY
  4. VELCADE [Suspect]
     Active Substance: BORTEZOMIB
     Indication: PLASMA CELL MYELOMA
     Dosage: UNK
  5. VELCADE [Suspect]
     Active Substance: BORTEZOMIB
     Indication: CHEMOTHERAPY
  6. DECADRON [Suspect]
     Active Substance: DEXAMETHASONE
     Indication: PLASMA CELL MYELOMA
     Dosage: UNK

REACTIONS (1)
  - Orthostatic hypotension [Recovered/Resolved]

NARRATIVE: CASE EVENT DATE: 20160320
